FAERS Safety Report 11463665 (Version 1)
Quarter: 2015Q3

REPORT INFORMATION
  Report Type: Spontaneous
  Country: US (occurrence: US)
  Receive Date: 20150831
  Receipt Date: 20150831
  Transmission Date: 20151125
  Serious: No
  Sender: FDA-Public Use
  Company Number: US-ELI_LILLY_AND_COMPANY-US201006004743

PATIENT
  Sex: Female

DRUGS (25)
  1. FISH OIL [Concomitant]
     Active Substance: FISH OIL
     Dosage: UNK, UNKNOWN
  2. PROZAC [Concomitant]
     Active Substance: FLUOXETINE HYDROCHLORIDE
  3. CYMBALTA [Suspect]
     Active Substance: DULOXETINE HYDROCHLORIDE
     Dosage: 60 MG, QOD
  4. FLUOXETINE [Concomitant]
     Active Substance: FLUOXETINE\FLUOXETINE HYDROCHLORIDE
     Dosage: 20 MG, DAILY (1/D)
  5. PRILOSEC [Concomitant]
     Active Substance: OMEPRAZOLE MAGNESIUM
     Dosage: 20 MG, DAILY (1/D)
  6. REVIA [Concomitant]
     Active Substance: NALTREXONE HYDROCHLORIDE
     Dosage: 25 MG, 2/D
  7. CYMBALTA [Suspect]
     Active Substance: DULOXETINE HYDROCHLORIDE
     Dosage: 30 MG, QD
  8. BABY ASPIRIN [Concomitant]
     Active Substance: ASPIRIN
     Dosage: UNK, DAILY (1/D)
  9. CYMBALTA [Suspect]
     Active Substance: DULOXETINE HYDROCHLORIDE
     Dosage: 30 MG, QOD
  10. CYMBALTA [Suspect]
     Active Substance: DULOXETINE HYDROCHLORIDE
     Dosage: 30 MG, UNKNOWN
  11. SYNTHROID [Concomitant]
     Active Substance: LEVOTHYROXINE SODIUM
     Dosage: 137 MEQ, DAILY (1/D)
  12. CYMBALTA [Suspect]
     Active Substance: DULOXETINE HYDROCHLORIDE
     Indication: DEPRESSION
     Dosage: 120 MG, DAILY (1/D)
  13. CYMBALTA [Suspect]
     Active Substance: DULOXETINE HYDROCHLORIDE
     Dosage: 30 MG, QOD
  14. ATIVAN [Concomitant]
     Active Substance: LORAZEPAM
     Dosage: 0.5 MG, AS NEEDED
  15. ZOCOR [Concomitant]
     Active Substance: SIMVASTATIN
     Dosage: 40 MG, DAILY (1/D)
  16. ATIVAN [Concomitant]
     Active Substance: LORAZEPAM
     Dosage: 1 MG, AS NEEDED
  17. BENTYL [Concomitant]
     Active Substance: DICYCLOMINE HYDROCHLORIDE
     Dosage: 10 MG, AS NEEDED
  18. ADDERALL [Concomitant]
     Active Substance: AMPHETAMINE ASPARTATE\AMPHETAMINE SULFATE\DEXTROAMPHETAMINE SACCHARATE\DEXTROAMPHETAMINE SULFATE
     Dosage: 20 MG, 2/D
  19. ZINC [Concomitant]
     Active Substance: ZINC\ZINC CHLORIDE
     Dosage: 50 MG, DAILY (1/D)
  20. MULTIVITAMIN [Concomitant]
     Active Substance: VITAMINS
     Dosage: UNK, DAILY (1/D)
  21. ATENOLOL. [Concomitant]
     Active Substance: ATENOLOL
     Dosage: 50 MG, DAILY (1/D)
  22. CYMBALTA [Suspect]
     Active Substance: DULOXETINE HYDROCHLORIDE
     Dosage: 60 MG, DAILY (1/D)
  23. BIOTIN [Concomitant]
     Active Substance: BIOTIN
     Dosage: 2500 MG, DAILY (1/D)
  24. ERGOCALCIFEROL (VITAMIN D) [Concomitant]
     Dosage: 2000 IU, 2/D
  25. COQ10 [Concomitant]
     Active Substance: UBIDECARENONE
     Dosage: 100 MG, DAILY (1/D)

REACTIONS (10)
  - Drug effect incomplete [Not Recovered/Not Resolved]
  - Decreased appetite [Not Recovered/Not Resolved]
  - Depression [Unknown]
  - Dry mouth [Not Recovered/Not Resolved]
  - Diarrhoea [Not Recovered/Not Resolved]
  - Drug dose omission [Unknown]
  - Hyperhidrosis [Not Recovered/Not Resolved]
  - Somnolence [Not Recovered/Not Resolved]
  - Fatigue [Unknown]
  - Disturbance in attention [Unknown]
